FAERS Safety Report 7682736-2 (Version None)
Quarter: 2011Q3

REPORT INFORMATION
  Report Type: 
  Country: None (occurrence: None)
  Receive Date: 20110815
  Receipt Date: 20110803
  Transmission Date: 20111222
  Serious: Yes (Hospitalization)
  Sender: FDA-Public Use
  Company Number: CA-JNJFOC-20110502850

PATIENT
  Sex: Male
  Weight: 84.5 kg

DRUGS (7)
  1. ANTICOAGULANT [Concomitant]
  2. REMICADE [Suspect]
     Dosage: INFUSION #14
     Route: 042
     Dates: start: 20110308
  3. REMICADE [Suspect]
     Dosage: INFUSION #15
     Route: 042
     Dates: start: 20110503
  4. SYNTHROID [Concomitant]
  5. REMICADE [Suspect]
     Indication: PSORIATIC ARTHROPATHY
     Route: 042
  6. ^HEART MEDICATION^ [Concomitant]
  7. CHOLESTEROL MEDICATION [Concomitant]

REACTIONS (1)
  - MYOCARDIAL INFARCTION [None]
